FAERS Safety Report 7493796-6 (Version None)
Quarter: 2011Q2

REPORT INFORMATION
  Report Type: 
  Country: None (occurrence: None)
  Receive Date: 20110520
  Receipt Date: 20110321
  Transmission Date: 20111010
  Serious: No
  Sender: FDA-Public Use
  Company Number: US-ASTRAZENECA-2011SE15757

PATIENT
  Sex: Male

DRUGS (1)
  1. VIMOVO [Suspect]
     Route: 048
     Dates: start: 20110301

REACTIONS (1)
  - COLITIS ULCERATIVE [None]
